FAERS Safety Report 7235441-0 (Version None)
Quarter: 2011Q1

REPORT INFORMATION
  Report Type: 
  Country: None (occurrence: None)
  Receive Date: 20110120
  Receipt Date: 20110118
  Transmission Date: 20110831
  Serious: Yes (Other)
  Sender: FDA-Public Use
  Company Number: US-JNJFOC-20100801352

PATIENT
  Sex: Female

DRUGS (1)
  1. TOPAMAX [Suspect]
     Indication: MYOCLONIC EPILEPSY
     Route: 048

REACTIONS (11)
  - AMNESIA [None]
  - ARTHRALGIA [None]
  - DIZZINESS [None]
  - MALAISE [None]
  - BACK PAIN [None]
  - BALANCE DISORDER [None]
  - BONE PAIN [None]
  - JOINT SWELLING [None]
  - LETHARGY [None]
  - DECREASED APPETITE [None]
  - SKIN DISCOLOURATION [None]
